FAERS Safety Report 23672936 (Version 2)
Quarter: 2024Q1

REPORT INFORMATION
  Report Type: Report from Study
  Country: CO (occurrence: CO)
  Receive Date: 20240326
  Receipt Date: 20240327
  Transmission Date: 20240409
  Serious: Yes (Death, Other)
  Sender: FDA-Public Use
  Company Number: CO-AstraZeneca-2024A071404

PATIENT
  Age: 22 Day
  Sex: Female

DRUGS (1)
  1. SYNAGIS [Suspect]
     Active Substance: PALIVIZUMAB
     Indication: Respiratory disorder prophylaxis
     Dosage: ONCE A MONTH
     Route: 030
     Dates: start: 20240306

REACTIONS (1)
  - Death [Fatal]

NARRATIVE: CASE EVENT DATE: 20240308
